FAERS Safety Report 4962360-2 (Version None)
Quarter: 2006Q2

REPORT INFORMATION
  Report Type: 
  Country: None (occurrence: None)
  Receive Date: 20060404
  Receipt Date: 20060324
  Transmission Date: 20061013
  Serious: Yes (Hospitalization)
  Sender: FDA-Public Use
  Company Number: 2006AC00628

PATIENT
  Age: 50 Year
  Sex: Male

DRUGS (4)
  1. QUETIAPINE [Suspect]
     Indication: SCHIZOAFFECTIVE DISORDER
     Route: 048
  2. ARIPIPRAZOLE [Interacting]
     Indication: SCHIZOAFFECTIVE DISORDER
     Route: 048
  3. ARIPIPRAZOLE [Interacting]
     Route: 048
  4. DIVALPROEX SODIUM [Concomitant]
     Indication: SCHIZOAFFECTIVE DISORDER
     Route: 048

REACTIONS (2)
  - DRUG INTERACTION [None]
  - SCHIZOAFFECTIVE DISORDER [None]
